FAERS Safety Report 23807596 (Version 1)
Quarter: 2024Q2

REPORT INFORMATION
  Report Type: Spontaneous
  Country: GB (occurrence: GB)
  Receive Date: 20240502
  Receipt Date: 20240502
  Transmission Date: 20240716
  Serious: Yes (Other)
  Sender: FDA-Public Use
  Company Number: GB-SUN PHARMACEUTICAL INDUSTRIES LTD-2024RR-444911

PATIENT
  Age: 56 Year
  Sex: Male
  Weight: 90 kg

DRUGS (2)
  1. CIPROFLOXACIN [Suspect]
     Active Substance: CIPROFLOXACIN
     Indication: Bacterial prostatitis
     Dosage: 500MG TWICE DAILY; ;
     Route: 065
     Dates: start: 20230630, end: 20230727
  2. TAMSULOSIN [Concomitant]
     Active Substance: TAMSULOSIN
     Indication: Bacterial prostatitis
     Dosage: UNK
     Route: 065
     Dates: start: 20230630, end: 20230727

REACTIONS (1)
  - Tendon pain [Not Recovered/Not Resolved]

NARRATIVE: CASE EVENT DATE: 20230710
